FAERS Safety Report 9186238 (Version 1)
Quarter: 2013Q1

REPORT INFORMATION
  Report Type: Spontaneous
  Country: US (occurrence: None)
  Receive Date: 20120628
  Receipt Date: 20120628
  Transmission Date: 20140127
  Serious: Yes (Hospitalization)
  Sender: FDA-Public Use
  Company Number: PHHY2011US61901

PATIENT
  Sex: Female

DRUGS (1)
  1. RECLAST [Concomitant]
     Dosage: 5 MG, INJ (ONCE A YEAR),  INTRAVENOUS

REACTIONS (1)
  - Renal failure [None]
